FAERS Safety Report 5241856-2 (Version None)
Quarter: 2007Q1

REPORT INFORMATION
  Report Type: 
  Country: None (occurrence: None)
  Receive Date: 20070220
  Receipt Date: 20070208
  Transmission Date: 20070707
  Serious: Yes (Hospitalization)
  Sender: FDA-Public Use
  Company Number: FR-PFIZER INC-2006052897

PATIENT
  Sex: Male
  Weight: 57 kg

DRUGS (3)
  1. SU-011,248 [Suspect]
     Indication: HEPATIC NEOPLASM MALIGNANT
     Route: 048
     Dates: start: 20060320, end: 20060413
  2. EFFEXOR [Concomitant]
     Route: 048
  3. SKENAN [Concomitant]
     Route: 048

REACTIONS (5)
  - ASTHENIA [None]
  - DERMATITIS BULLOUS [None]
  - HEPATIC FUNCTION ABNORMAL [None]
  - SOMNOLENCE [None]
  - THROMBOCYTOPENIA [None]
